FAERS Safety Report 24949829 (Version 2)
Quarter: 2025Q1

REPORT INFORMATION
  Report Type: Report from Study
  Country: US (occurrence: US)
  Receive Date: 20250210
  Receipt Date: 20250220
  Transmission Date: 20250409
  Serious: Yes (Other)
  Sender: ABBVIE
  Company Number: US-ABBVIE-6124370

PATIENT
  Age: 46 Year
  Sex: Female
  Weight: 54 kg

DRUGS (3)
  1. RINVOQ [Suspect]
     Active Substance: UPADACITINIB
     Indication: Rheumatoid arthritis
     Dosage: FORM STRENGTH: 15 MILIGRAM
     Route: 048
     Dates: start: 2024
  2. BENLYSTA [Concomitant]
     Active Substance: BELIMUMAB
     Indication: Systemic lupus erythematosus
  3. METHOTREXATE [Concomitant]
     Active Substance: METHOTREXATE
     Indication: Systemic lupus erythematosus

REACTIONS (3)
  - Systemic lupus erythematosus [Recovering/Resolving]
  - Rheumatoid arthritis [Recovered/Resolved]
  - Brain fog [Unknown]

NARRATIVE: CASE EVENT DATE: 20250101
